FAERS Safety Report 10754723 (Version 2)
Quarter: 2015Q1

REPORT INFORMATION
  Report Type: Spontaneous
  Country: US (occurrence: US)
  Receive Date: 20150202
  Receipt Date: 20150226
  Transmission Date: 20150721
  Serious: Yes (Hospitalization)
  Sender: FDA-Public Use
  Company Number: US-PFIZER INC-2015037885

PATIENT
  Age: 62 Year
  Sex: Male
  Weight: 51 kg

DRUGS (1)
  1. PHENYTOIN. [Suspect]
     Active Substance: PHENYTOIN
     Indication: SEIZURE
     Dosage: UNK

REACTIONS (4)
  - Mental disorder [Unknown]
  - Drug ineffective [Unknown]
  - Anticonvulsant drug level decreased [Unknown]
  - Abnormal behaviour [Unknown]
